FAERS Safety Report 5729159-0 (Version None)
Quarter: 2008Q2

REPORT INFORMATION
  Report Type: 
  Country: None (occurrence: None)
  Receive Date: 20080506
  Receipt Date: 20080424
  Transmission Date: 20081010
  Serious: Yes (Other)
  Sender: FDA-Public Use
  Company Number: BR-PFIZER INC-2007086314

PATIENT
  Sex: Male

DRUGS (1)
  1. ZITHROMAX [Suspect]
     Indication: TONSILLITIS
     Route: 048
     Dates: start: 20071001, end: 20071001

REACTIONS (4)
  - DIARRHOEA [None]
  - DISBACTERIOSIS [None]
  - FEELING ABNORMAL [None]
  - GASTROENTERITIS [None]
